FAERS Safety Report 13613152 (Version 2)
Quarter: 2017Q2

REPORT INFORMATION
  Report Type: Spontaneous
  Country: US (occurrence: US)
  Receive Date: 20170605
  Receipt Date: 20170605
  Transmission Date: 20170830
  Serious: Yes (Other)
  Sender: FDA-Public Use
  Company Number: US-BRISTOL-MYERS SQUIBB COMPANY-BMS-2017-048172

PATIENT
  Sex: Female

DRUGS (2)
  1. YERVOY [Suspect]
     Active Substance: IPILIMUMAB
     Indication: METASTATIC MALIGNANT MELANOMA
     Dosage: UNK
     Route: 065
  2. OPDIVO [Suspect]
     Active Substance: NIVOLUMAB
     Indication: METASTATIC MALIGNANT MELANOMA
     Dosage: UNK
     Route: 065

REACTIONS (8)
  - Lung neoplasm [Unknown]
  - Pneumonia [Unknown]
  - Hiatus hernia [Unknown]
  - Spinal disorder [Unknown]
  - Cardiomegaly [Unknown]
  - Pleural effusion [Unknown]
  - Face oedema [Unknown]
  - Pain in jaw [Unknown]
